FAERS Safety Report 14964465 (Version 1)
Quarter: 2018Q2

REPORT INFORMATION
  Report Type: Spontaneous
  Country: FR (occurrence: FR)
  Receive Date: 20180601
  Receipt Date: 20180601
  Transmission Date: 20180711
  Serious: Yes (Hospitalization)
  Sender: FDA-Public Use
  Company Number: FR-INDIVIOR LIMITED-INDV-111256-2018

PATIENT
  Age: 26 Year
  Sex: Male

DRUGS (1)
  1. SUBUTEX [Suspect]
     Active Substance: BUPRENORPHINE HYDROCHLORIDE
     Indication: PRODUCT USED FOR UNKNOWN INDICATION
     Dosage: 4 MG, UNK
     Route: 058
     Dates: start: 20180420, end: 20180420

REACTIONS (3)
  - Drug use disorder [Unknown]
  - Intentional product use issue [Recovered/Resolved]
  - Injection site oedema [Unknown]

NARRATIVE: CASE EVENT DATE: 20180420
